FAERS Safety Report 12684675 (Version 2)
Quarter: 2016Q4

REPORT INFORMATION
  Report Type: Report from Study
  Country: JP (occurrence: JP)
  Receive Date: 20160825
  Receipt Date: 20161010
  Transmission Date: 20170207
  Serious: Yes (Hospitalization, Other)
  Sender: FDA-Public Use
  Company Number: PHJP2016JP023317

PATIENT
  Age: 71 Year
  Sex: Male
  Weight: 55 kg

DRUGS (25)
  1. PREDNISOLONE. [Suspect]
     Active Substance: PREDNISOLONE
     Dosage: 20 MG, QD
     Route: 048
     Dates: start: 20150717
  2. HUMULIN N [Concomitant]
     Active Substance: INSULIN HUMAN
     Indication: TYPE 2 DIABETES MELLITUS
     Dosage: 16 IU, UNK
     Route: 065
     Dates: end: 20151017
  3. HUMULIN R [Concomitant]
     Active Substance: INSULIN HUMAN
     Dosage: 62 IU, UNK
     Route: 065
     Dates: start: 20150827, end: 20150917
  4. HUMULIN R [Concomitant]
     Active Substance: INSULIN HUMAN
     Dosage: 58 IU, UNK
     Route: 065
     Dates: start: 20150918, end: 20151018
  5. NOVORAPID [Concomitant]
     Active Substance: INSULIN ASPART
     Dosage: 72 IU, UNK
     Route: 065
     Dates: start: 20151031, end: 20151108
  6. METHYCOBAL [Concomitant]
     Active Substance: METHYLCOBALAMIN
     Indication: NEUROPATHY PERIPHERAL
     Dosage: UNK
     Route: 065
  7. NOVORAPID [Concomitant]
     Active Substance: INSULIN ASPART
     Dosage: 60 IU, UNK
     Route: 065
     Dates: start: 20151110, end: 20151110
  8. MEDICON//DEXTROMETHORPHAN HYDROBROMIDE [Concomitant]
     Indication: BRONCHITIS CHRONIC
     Dosage: UNK
     Route: 065
  9. BAKTAR [Concomitant]
     Active Substance: SULFAMETHOXAZOLE\TRIMETHOPRIM
     Indication: BRONCHITIS CHRONIC
     Dosage: UNK
     Route: 065
     Dates: start: 20150716
  10. EQUA TAB [Suspect]
     Active Substance: VILDAGLIPTIN
     Indication: TYPE 2 DIABETES MELLITUS
     Dosage: 50 MG, BID
     Route: 048
     Dates: start: 20150130
  11. PREDNISOLONE. [Suspect]
     Active Substance: PREDNISOLONE
     Indication: INTERSTITIAL LUNG DISEASE
     Dosage: 10 MG, QD
     Route: 048
     Dates: end: 20150716
  12. HUMULIN R [Concomitant]
     Active Substance: INSULIN HUMAN
     Indication: TYPE 2 DIABETES MELLITUS
     Dosage: 36 IU, UNK
     Route: 065
     Dates: end: 20150716
  13. HUMULIN R [Concomitant]
     Active Substance: INSULIN HUMAN
     Dosage: 46 IU, UNK
     Route: 065
     Dates: start: 20150717, end: 20150811
  14. LANTUS [Concomitant]
     Active Substance: INSULIN GLARGINE
     Indication: TYPE 2 DIABETES MELLITUS
     Dosage: 5 IU, UNK
     Route: 065
     Dates: start: 20151028
  15. NOVORAPID [Concomitant]
     Active Substance: INSULIN ASPART
     Indication: TYPE 2 DIABETES MELLITUS
     Dosage: 58 IU, UNK
     Route: 065
     Dates: start: 20151019, end: 20151020
  16. NOVORAPID [Concomitant]
     Active Substance: INSULIN ASPART
     Dosage: 64 IU, UNK
     Route: 065
     Dates: start: 20151021, end: 20151022
  17. NOVORAPID [Concomitant]
     Active Substance: INSULIN ASPART
     Dosage: 52 IU, UNK
     Route: 065
     Dates: start: 20151127
  18. MYSLEE [Concomitant]
     Active Substance: ZOLPIDEM TARTRATE
     Indication: INSOMNIA
     Dosage: UNK
     Route: 065
  19. NOVORAPID [Concomitant]
     Active Substance: INSULIN ASPART
     Dosage: 70 IU, UNK
     Route: 065
     Dates: start: 20151023, end: 20151030
  20. HUMULIN R [Concomitant]
     Active Substance: INSULIN HUMAN
     Dosage: 50 IU, UNK
     Route: 065
     Dates: start: 20150812, end: 20150826
  21. NOVORAPID [Concomitant]
     Active Substance: INSULIN ASPART
     Dosage: 64 IU, UNK
     Route: 065
     Dates: start: 20151109, end: 20151109
  22. NOVORAPID [Concomitant]
     Active Substance: INSULIN ASPART
     Dosage: 58 IU, UNK
     Route: 065
     Dates: start: 20151111, end: 20151126
  23. PROTECADIN [Concomitant]
     Active Substance: LAFUTIDINE
     Indication: GASTRIC ULCER
     Dosage: UNK
     Route: 065
  24. MYONAL//EPERISONE HYDROCHLORIDE [Concomitant]
     Indication: BACK PAIN
     Dosage: UNK
     Route: 065
  25. LYRICA [Concomitant]
     Active Substance: PREGABALIN
     Indication: DIABETIC COMPLICATION
     Dosage: UNK
     Route: 065
     Dates: start: 20150130

REACTIONS (4)
  - Hyperglycaemia [Recovering/Resolving]
  - Concomitant disease aggravated [Unknown]
  - Glycosylated haemoglobin increased [Unknown]
  - Diabetic nephropathy [Unknown]

NARRATIVE: CASE EVENT DATE: 20151019
